FAERS Safety Report 17369017 (Version 1)
Quarter: 2020Q1

REPORT INFORMATION
  Report Type: Spontaneous
  Country: US (occurrence: US)
  Receive Date: 20200204
  Receipt Date: 20200204
  Transmission Date: 20200409
  Serious: No
  Sender: FDA-Public Use
  Company Number: US-009507513-2002USA001182

PATIENT
  Sex: Female
  Weight: 61 kg

DRUGS (3)
  1. SINEMET [Suspect]
     Active Substance: CARBIDOPA\LEVODOPA
     Indication: PARKINSON^S DISEASE
     Route: 048
  2. CLONIDINE HYDROCHLORIDE. [Suspect]
     Active Substance: CLONIDINE HYDROCHLORIDE
     Indication: DYSKINESIA
  3. CLONIDINE HYDROCHLORIDE. [Suspect]
     Active Substance: CLONIDINE HYDROCHLORIDE
     Indication: NERVOUS SYSTEM DISORDER
     Dosage: ONE TABLET EVERY NIGHT AT 7:45 IN THE EVENING
     Route: 048

REACTIONS (5)
  - Withdrawal syndrome [Not Recovered/Not Resolved]
  - Myalgia [Not Recovered/Not Resolved]
  - Anxiety [Not Recovered/Not Resolved]
  - Blood pressure decreased [Not Recovered/Not Resolved]
  - Abdominal pain [Not Recovered/Not Resolved]
